FAERS Safety Report 11128701 (Version 1)
Quarter: 2015Q2

REPORT INFORMATION
  Report Type: Spontaneous
  Country: IT (occurrence: None)
  Receive Date: 20150519
  Receipt Date: 20150519
  Transmission Date: 20150821
  Serious: Yes (Hospitalization)
  Sender: FDA-Public Use
  Company Number: FK201502294

PATIENT
  Age: 66 Year
  Sex: Female
  Weight: 54 kg

DRUGS (7)
  1. PACLITAXEL (MANUFACTURER UNKNOWN) (PACLITAXEL) (PACLITAXEL) [Suspect]
     Active Substance: PACLITAXEL
     Indication: OVARIAN CANCER
     Dosage: 1 D
     Dates: start: 20140613, end: 20141010
  2. NEULASTA [Suspect]
     Active Substance: PEGFILGRASTIM
     Dates: start: 20140808, end: 20141010
  3. CARBOPLATIN (CARBOPLATIN) (CARBOPLATIN) [Suspect]
     Active Substance: CARBOPLATIN
     Indication: OVARIAN CANCER
     Dates: start: 20140613, end: 20141010
  4. AVASTIN [Suspect]
     Active Substance: BEVACIZUMAB
     Indication: OVARIAN CANCER
     Dates: start: 20140613, end: 20150307
  5. TRIMETON (CHLORPHENAMINE MALEATE) [Concomitant]
  6. DEXAMETHASONE 21 - PHOSPHATE DISODIUM (DEXAMETHASONE SODIUM PHOSPHATE) [Concomitant]
  7. PANTORC (PANTOPRAZOLE SODIUM SESQUIHYDRATE) [Concomitant]

REACTIONS (3)
  - Leukocytosis [None]
  - Blast cell count increased [None]
  - Neutropenia [None]

NARRATIVE: CASE EVENT DATE: 20150326
